FAERS Safety Report 5648653-4 (Version None)
Quarter: 2008Q1

REPORT INFORMATION
  Report Type: 
  Country: None (occurrence: None)
  Receive Date: 20080304
  Receipt Date: 20080227
  Transmission Date: 20080703
  Serious: Yes (Other)
  Sender: FDA-Public Use
  Company Number: A0712219A

PATIENT
  Age: 43 Year
  Sex: Female

DRUGS (3)
  1. ADVAIR DISKUS 100/50 [Suspect]
     Indication: COUGH
     Route: 055
     Dates: start: 20080211, end: 20080213
  2. BIAXIN [Concomitant]
  3. ALBUTEROL [Concomitant]

REACTIONS (2)
  - ANGINA PECTORIS [None]
  - ASTHMA [None]
